FAERS Safety Report 17693641 (Version 2)
Quarter: 2021Q2

REPORT INFORMATION
  Report Type: Report from Study
  Country: US (occurrence: US)
  Receive Date: 20200422
  Receipt Date: 20210622
  Transmission Date: 20210716
  Serious: Yes (Hospitalization)
  Sender: FDA-Public Use
  Company Number: US-REGENERON PHARMACEUTICALS, INC.-2020-28351

PATIENT

DRUGS (24)
  1. VELEDIMEX [Suspect]
     Active Substance: VELEDIMEX
     Indication: GLIOBLASTOMA
     Dosage: 20 MG (20 MG,1 IN 1 D)
     Route: 048
     Dates: start: 20200224
  2. DEXAMETHASONE. [Concomitant]
     Active Substance: DEXAMETHASONE
     Dosage: 2 MG, 1 IN 12HR
     Route: 048
     Dates: start: 20200227, end: 20200228
  3. CEMIPLIMAB [Suspect]
     Active Substance: CEMIPLIMAB
     Dosage: 350 MG (350 MG,1 IN 1 D)
     Route: 042
     Dates: start: 20200310
  4. DEXAMETHASONE. [Concomitant]
     Active Substance: DEXAMETHASONE
     Indication: HEMIPARESIS
     Dosage: 2 MG, 1 IN 12HR
     Route: 042
     Dates: start: 20200225, end: 20200226
  5. ACETAMINOPHEN. [Concomitant]
     Active Substance: ACETAMINOPHEN
     Indication: CYTOKINE RELEASE SYNDROME
     Dosage: 650 MG, AS NECESSARY
     Route: 048
     Dates: start: 20200224, end: 20200224
  6. ACETAMINOPHEN. [Concomitant]
     Active Substance: ACETAMINOPHEN
     Indication: PAIN
     Dosage: 1000 MG, AS NECESSARY
     Route: 048
     Dates: start: 20200227, end: 20200302
  7. MORPHINE [Concomitant]
     Active Substance: MORPHINE
     Indication: PAIN
     Dosage: 5 MG, AS NECESSARY
     Route: 048
     Dates: start: 20200224, end: 20200224
  8. AD?RTS?HIL?12 [Suspect]
     Active Substance: INVESTIGATIONAL PRODUCT
     Indication: GLIOBLASTOMA
     Dosage: 2.0 X 10 ^11; LEFT FRONTAL (0.1 ML,2.0 X 10^11)
     Route: 036
     Dates: start: 20200224, end: 20200224
  9. ENTECAVIR. [Concomitant]
     Active Substance: ENTECAVIR
     Indication: HEPATITIS B
     Dosage: 0.5 MG (0.5 MG,1 IN 1 D)
     Route: 048
     Dates: start: 201910
  10. DEXAMETHASONE. [Concomitant]
     Active Substance: DEXAMETHASONE
     Indication: CYTOKINE RELEASE SYNDROME
     Dosage: 2 MG, ONCE
     Route: 048
     Dates: start: 20200212, end: 20200213
  11. HEPARIN [Concomitant]
     Active Substance: HEPARIN SODIUM
     Indication: THROMBOSIS
     Dosage: 5000 IU, 2 IN 1 D, INJECTION
     Dates: start: 20200225, end: 20200310
  12. DOCUSATE [Concomitant]
     Active Substance: DOCUSATE
     Indication: CONSTIPATION PROPHYLAXIS
     Dosage: 100 MG, AS NECESSARY
     Route: 048
     Dates: start: 20200226, end: 20200310
  13. ACETAMINOPHEN. [Concomitant]
     Active Substance: ACETAMINOPHEN
     Indication: HEADACHE
     Dosage: 650 MG, ONCE
     Route: 054
     Dates: start: 20200225, end: 20200225
  14. OFIRMEV [Concomitant]
     Active Substance: ACETAMINOPHEN
     Indication: PAIN
     Dosage: 750 MG, ONCE
     Route: 042
     Dates: start: 20200224, end: 20200224
  15. CEMIPLIMAB [Suspect]
     Active Substance: CEMIPLIMAB
     Indication: GLIOBLASTOMA
     Dosage: 350 MG (350 MG,1 IN 1 D)
     Route: 042
     Dates: start: 20200219, end: 20200219
  16. LEVETIRACETAM. [Concomitant]
     Active Substance: LEVETIRACETAM
     Indication: SEIZURE PROPHYLAXIS
     Dosage: 500 MG, 1 IN 2 HR
     Route: 042
     Dates: start: 20200225, end: 20200302
  17. SODIUM CHLORIDE. [Concomitant]
     Active Substance: SODIUM CHLORIDE
     Indication: CYTOKINE RELEASE SYNDROME
     Dosage: CONTINUOUS
     Route: 042
     Dates: start: 20200225, end: 20200303
  18. METOCLOPRAMIDE. [Concomitant]
     Active Substance: METOCLOPRAMIDE
     Indication: CYTOKINE RELEASE SYNDROME
     Dosage: 10 MG, AS NECESSARY
     Route: 042
     Dates: start: 20200225, end: 20200225
  19. POTASSIUM CHLORIDE. [Concomitant]
     Active Substance: POTASSIUM CHLORIDE
     Dosage: 20 MEQ, ONCE
     Route: 048
     Dates: start: 20200227, end: 20200227
  20. LEVETIRACETAM. [Concomitant]
     Active Substance: LEVETIRACETAM
     Indication: CYTOKINE RELEASE SYNDROME
     Dosage: 1000 MG, ONCE
     Route: 042
     Dates: start: 20200224, end: 20200224
  21. ACETAMINOPHEN. [Concomitant]
     Active Substance: ACETAMINOPHEN
     Indication: PREMEDICATION
     Dosage: 1000 MG, ONCE
     Route: 042
     Dates: start: 20200225, end: 20200225
  22. CEFAZOLIN [Concomitant]
     Active Substance: CEFAZOLIN
     Indication: ANTIBIOTIC PROPHYLAXIS
     Dosage: 1000 MG, 1 I N 8 HR
     Route: 042
     Dates: start: 20200224, end: 20200225
  23. POTASSIUM CHLORIDE. [Concomitant]
     Active Substance: POTASSIUM CHLORIDE
     Indication: HYPOKALAEMIA
     Dosage: 10 MEQ, 1 IN 1 HR
     Route: 042
     Dates: start: 20200225, end: 20200225
  24. POTASSIUM PHOSPHATE                /00493501/ [Concomitant]
     Active Substance: POTASSIUM PHOSPHATE, DIBASIC
     Indication: HYPOKALAEMIA
     Dosage: 15 MMOL, ONCE
     Route: 042
     Dates: start: 20200226, end: 20200226

REACTIONS (1)
  - Hemiparesis [Recovered/Resolved]

NARRATIVE: CASE EVENT DATE: 20200228
